FAERS Safety Report 21420214 (Version 1)
Quarter: 2022Q4

REPORT INFORMATION
  Report Type: Other
  Country: GB (occurrence: GB)
  Receive Date: 20221007
  Receipt Date: 20221007
  Transmission Date: 20230112
  Serious: Yes (Other)
  Sender: FDA-Public Use
  Company Number: None

PATIENT
  Age: 55 Year
  Sex: Male
  Weight: 86 kg

DRUGS (4)
  1. LOPERAMIDE [Suspect]
     Active Substance: LOPERAMIDE
     Indication: Ill-defined disorder
     Dosage: UNK (CAPSULES)
     Route: 065
     Dates: start: 20220927
  2. AMLODIPINE [Concomitant]
     Active Substance: AMLODIPINE BESYLATE
     Indication: Ill-defined disorder
     Dosage: UNK (ONE TO BE TAKEN DAILY )
     Route: 065
     Dates: start: 20211126
  3. OMEPRAZOLE [Concomitant]
     Active Substance: OMEPRAZOLE
     Indication: Ill-defined disorder
     Dosage: ONE CAPSULE TO BE TAKEN DAILY
     Route: 065
     Dates: start: 20211126
  4. RAMIPRIL [Concomitant]
     Active Substance: RAMIPRIL
     Indication: Ill-defined disorder
     Dosage: UNK (ONE TO BE TAKEN DAILY )
     Route: 065
     Dates: start: 20211126

REACTIONS (2)
  - Lip swelling [Recovered/Resolved]
  - Adverse drug reaction [Recovered/Resolved]

NARRATIVE: CASE EVENT DATE: 20220927
